FAERS Safety Report 4737016-1 (Version None)
Quarter: 2005Q3

REPORT INFORMATION
  Report Type: 
  Country: None (occurrence: None)
  Receive Date: 20050802
  Receipt Date: 20050721
  Transmission Date: 20060218
  Serious: Yes (Hospitalization, Other)
  Sender: FDA-Public Use
  Company Number: 2005105336

PATIENT
  Sex: Male
  Weight: 67 kg

DRUGS (6)
  1. VFEND [Suspect]
     Indication: PNEUMONIA FUNGAL
     Dates: start: 20041006, end: 20050719
  2. CYMBALTA [Concomitant]
  3. XANAX [Concomitant]
  4. SCOPOLAMINE PATCHES (HYOSCINE) [Concomitant]
  5. ELAVIL [Concomitant]
  6. OXYCODONE (OXYCODONE) [Concomitant]

REACTIONS (7)
  - AGITATION [None]
  - ANXIETY [None]
  - BONE MARROW TRANSPLANT [None]
  - FAILURE TO THRIVE [None]
  - HALLUCINATION [None]
  - PSYCHOTIC DISORDER [None]
  - PYREXIA [None]
